FAERS Safety Report 24955503 (Version 1)
Quarter: 2025Q1

REPORT INFORMATION
  Report Type: Spontaneous
  Country: CA (occurrence: CA)
  Receive Date: 20250211
  Receipt Date: 20250211
  Transmission Date: 20250409
  Serious: Yes (Hospitalization)
  Sender: MYLAN
  Company Number: CA-MYLANLABS-2025M1011211

PATIENT
  Age: 30 Year
  Sex: Female

DRUGS (10)
  1. LEVOTHYROXINE [Suspect]
     Active Substance: LEVOTHYROXINE
     Indication: Product used for unknown indication
     Route: 065
  2. CONCERTA [Suspect]
     Active Substance: METHYLPHENIDATE HYDROCHLORIDE
     Indication: Product used for unknown indication
     Dosage: 36 MILLIGRAM, QD (1 EVERY 1 DAYS)
     Route: 065
  3. CYCLOBENZAPRINE [Suspect]
     Active Substance: CYCLOBENZAPRINE
     Indication: Product used for unknown indication
     Route: 065
  4. DOCUSATE SODIUM [Suspect]
     Active Substance: DOCUSATE SODIUM
     Indication: Product used for unknown indication
     Route: 065
  5. DOMPERIDONE [Suspect]
     Active Substance: DOMPERIDONE
     Indication: Lactation stimulation therapy
     Route: 065
  6. DULOXETINE HYDROCHLORIDE [Suspect]
     Active Substance: DULOXETINE HYDROCHLORIDE
     Indication: Product used for unknown indication
     Dosage: 90 MILLIGRAM, QD (1 EVERY 1 DAYS)
     Route: 065
  7. FERROUS SULFATE [Suspect]
     Active Substance: FERROUS SULFATE
     Indication: Product used for unknown indication
     Route: 065
  8. INSULIN NOS [Suspect]
     Active Substance: INSULIN NOS
     Indication: Product used for unknown indication
     Route: 065
  9. OMEPRAZOLE [Suspect]
     Active Substance: OMEPRAZOLE
     Indication: Product used for unknown indication
     Route: 065
  10. URSODIOL [Suspect]
     Active Substance: URSODIOL
     Indication: Product used for unknown indication
     Route: 065

REACTIONS (3)
  - Pre-eclampsia [Unknown]
  - Blood pressure increased [Unknown]
  - Exposure during pregnancy [Unknown]
